FAERS Safety Report 5651086-8 (Version None)
Quarter: 2008Q1

REPORT INFORMATION
  Report Type: 
  Country: None (occurrence: None)
  Receive Date: 20080305
  Receipt Date: 20080222
  Transmission Date: 20080703
  Serious: Yes (Hospitalization)
  Sender: FDA-Public Use
  Company Number: FR-BRISTOL-MYERS SQUIBB COMPANY-14095608

PATIENT
  Age: 66 Year
  Sex: Male

DRUGS (11)
  1. LYSODREN [Suspect]
     Indication: ADRENOCORTICAL CARCINOMA
     Route: 048
     Dates: start: 20071130
  2. VEPESID [Suspect]
     Indication: ADRENOCORTICAL CARCINOMA
     Route: 042
     Dates: start: 20080208, end: 20080210
  3. DOXORUBICIN HCL [Suspect]
     Indication: ADRENOCORTICAL CARCINOMA
     Route: 042
     Dates: start: 20080207, end: 20080207
  4. CISPLATYL [Suspect]
     Indication: ADRENOCORTICAL CARCINOMA
     Route: 042
     Dates: start: 20080209, end: 20080210
  5. HYDROCORTISONE [Concomitant]
  6. FLUDROCORTISONE ACETATE [Concomitant]
  7. XYZAL [Concomitant]
  8. NEXIUM [Concomitant]
  9. NOVOLOG MIX 70/30 [Concomitant]
  10. INSULIN [Concomitant]
  11. NOVORAPID [Concomitant]

REACTIONS (6)
  - ANAEMIA [None]
  - CHILLS [None]
  - EPISTAXIS [None]
  - FEBRILE NEUTROPENIA [None]
  - HYPERTHERMIA [None]
  - THROMBOCYTOPENIA [None]
